FAERS Safety Report 25346137 (Version 1)
Quarter: 2025Q2

REPORT INFORMATION
  Report Type: Spontaneous
  Country: CN (occurrence: CN)
  Receive Date: 20250522
  Receipt Date: 20250522
  Transmission Date: 20250716
  Serious: Yes (Hospitalization)
  Sender: NOVO NORDISK
  Company Number: None

PATIENT
  Age: 64 Year
  Sex: Male
  Weight: 68 kg

DRUGS (3)
  1. INSULIN ASPART [Suspect]
     Active Substance: INSULIN ASPART
     Indication: Diabetes mellitus
     Dosage: 24 IU, QD (14U IN THE MORNING AND 10U IN THE EVENING)
     Route: 058
     Dates: start: 20050101
  2. LEUCOGEN [Concomitant]
     Active Substance: LEUCOGEN
     Indication: Pyrexia
     Dosage: 20 MG, TID
     Dates: start: 20250324
  3. CEFIXIME [Concomitant]
     Active Substance: CEFIXIME
     Indication: Pyrexia
     Dosage: 0.1 G, BID
     Dates: start: 20250324

REACTIONS (2)
  - Hepatic failure [Unknown]
  - Hypoglycaemia [Recovering/Resolving]

NARRATIVE: CASE EVENT DATE: 20250331
